FAERS Safety Report 4299178-2 (Version None)
Quarter: 2004Q1

REPORT INFORMATION
  Report Type: 
  Country: None (occurrence: None)
  Receive Date: 20040217
  Receipt Date: 20040206
  Transmission Date: 20041129
  Serious: Yes (Death, Other)
  Sender: FDA-Public Use
  Company Number: USA-2003-0010469

PATIENT
  Age: 44 Year
  Sex: Male
  Weight: 101.1 kg

DRUGS (8)
  1. OXYCONTIN [Suspect]
     Indication: PAIN
     Dosage: MG
     Dates: start: 20000101
  2. HYDROCODONE BITARTRATE [Suspect]
  3. OXYMORPHONE HYDROCHLORIDE [Suspect]
  4. CARBAMAZEPINE [Suspect]
  5. TRAZODONE HCL [Suspect]
  6. ACETAMINOPHEN [Suspect]
  7. CITALOPRAM (CITALOPRAM) [Suspect]
  8. DIPHENHYDRAMINE HCL [Suspect]

REACTIONS (13)
  - ACCIDENTAL OVERDOSE [None]
  - CARDIOMEGALY [None]
  - DEPRESSION [None]
  - DRUG ABUSER [None]
  - DRUG DEPENDENCE [None]
  - DRUG TOXICITY [None]
  - HEPATIC STEATOSIS [None]
  - INADEQUATE DIET [None]
  - LIVER DISORDER [None]
  - MITRAL VALVE STENOSIS [None]
  - PULMONARY CONGESTION [None]
  - SMOKER [None]
  - SWELLING [None]
